FAERS Safety Report 5005711-5 (Version None)
Quarter: 2006Q2

REPORT INFORMATION
  Report Type: 
  Country: None (occurrence: None)
  Receive Date: 20060515
  Receipt Date: 20060503
  Transmission Date: 20061013
  Serious: Yes (Hospitalization)
  Sender: FDA-Public Use
  Company Number: 2006057371

PATIENT
  Age: 22 Year
  Sex: Female
  Weight: 88.4 kg

DRUGS (27)
  1. IDARUBICIN HCL [Suspect]
     Indication: ACUTE MYELOID LEUKAEMIA
     Dosage: (16 MG, 1 IN 1 D), INTRAVENOUS
     Route: 042
     Dates: start: 20060317
  2. ETOPOSIDE [Suspect]
     Indication: ACUTE MYELOID LEUKAEMIA
     Dosage: (140 MG, 1 IN 1 D), INTRAVENOUS
     Route: 042
     Dates: start: 20060317
  3. CYTARABINE [Suspect]
     Indication: ACUTE MYELOID LEUKAEMIA
     Dosage: (5.6 GRAM, 2 IN 1 D), INTRAVENOUS
     Route: 042
     Dates: start: 20060317
  4. NILSTAT (NYSTATIN) [Concomitant]
  5. CHLORHEXIDINE (CHLORHEXIDINE) [Concomitant]
  6. TROPISETRON (TROPISETRON) [Concomitant]
  7. MAXOLON [Concomitant]
  8. G-CSF (GRANULOCYTE COLONY STIMULATING FACTOR) [Concomitant]
  9. NORETHISTERONE (NORETHISTERONE) [Concomitant]
  10. CLARITIN [Concomitant]
  11. MORPHINE [Concomitant]
  12. VALTREX [Concomitant]
  13. KONAKION [Concomitant]
  14. CANESTEN (CLOTRIMAZOLE) [Concomitant]
  15. VORICONAZOLE (VORICONAZOLE) [Concomitant]
  16. SLOW-K [Concomitant]
  17. VANCOMYCIN [Concomitant]
  18. CIPROFLOXACIN [Concomitant]
  19. ORAL BALANCE (ALOE VERA, GLUCOSE OXIDASE, HYETELLOSE, LYSOZYME, POTASS [Concomitant]
  20. MAGNESIUM (MAGNESIUM) [Concomitant]
  21. METHOPT (HYPROMELLOSE) [Concomitant]
  22. MEROPENEM (MEROPENEM) [Concomitant]
  23. CERNEVIT-12 [Concomitant]
  24. TEICOPLANIN (TEICOPLANIN) [Concomitant]
  25. PHOSPHATE-SANDOZ (POTASSIUM BICARBONATE, SODIUM BICARBONATE, SODIUM PH [Concomitant]
  26. METRONIDAZOLE [Concomitant]
  27. CALTRATE (CALCIUM CARBONATE) [Concomitant]

REACTIONS (25)
  - COAGULOPATHY [None]
  - COLLAPSE OF LUNG [None]
  - DRUG ERUPTION [None]
  - ENTEROCOLITIS [None]
  - GENERALISED OEDEMA [None]
  - HAEMOGLOBIN DECREASED [None]
  - HEPATOMEGALY [None]
  - HERPES VIRUS INFECTION [None]
  - HYPOALBUMINAEMIA [None]
  - HYPOTENSION [None]
  - LIVER FUNCTION TEST ABNORMAL [None]
  - MALAISE [None]
  - MALNUTRITION [None]
  - MEDICAL DEVICE COMPLICATION [None]
  - NEUTROPHIL COUNT INCREASED [None]
  - NIGHTMARE [None]
  - PLATELET COUNT DECREASED [None]
  - PLEURAL EFFUSION [None]
  - PROCEDURAL COMPLICATION [None]
  - PULMONARY OEDEMA [None]
  - PYREXIA [None]
  - VAGINAL CANDIDIASIS [None]
  - VAGINAL HAEMORRHAGE [None]
  - VAGINAL INFECTION [None]
  - WHITE BLOOD CELL COUNT INCREASED [None]
